FAERS Safety Report 25849061 (Version 1)
Quarter: 2025Q3

REPORT INFORMATION
  Report Type: Spontaneous
  Country: US (occurrence: None)
  Receive Date: 20250925
  Receipt Date: 20250925
  Transmission Date: 20251021
  Serious: No
  Sender: FDA-CTU
  Company Number: None

PATIENT
  Sex: Male

DRUGS (2)
  1. VYALEV [Suspect]
     Active Substance: FOSCARBIDOPA\FOSLEVODOPA
     Indication: Parkinson^s disease
     Dosage: 1 ML DAILY SUBCUTANEOUS
     Route: 058
     Dates: start: 20250430
  2. VIAL ADAPTER VENTED TRNSFR [Concomitant]

REACTIONS (4)
  - Therapy interrupted [None]
  - Confusional state [None]
  - Unresponsive to stimuli [None]
  - Hypotension [None]
